FAERS Safety Report 8510673-X (Version None)
Quarter: 2012Q3

REPORT INFORMATION
  Report Type: 
  Country: None (occurrence: None)
  Receive Date: 20120709
  Receipt Date: 20120709
  Transmission Date: 20120928
  Serious: Yes (Other)
  Sender: FDA-Public Use
  Company Number: None

PATIENT
  Age: 15 Year
  Sex: Female
  Weight: 56.6996 kg

DRUGS (4)
  1. MINOCYCLINE HCL [Concomitant]
  2. SERTRALINE HYDROCHLORIDE [Suspect]
     Indication: DEPRESSION
     Dosage: 1 TABLET DAILY PO
     Route: 048
     Dates: start: 20110702, end: 20120602
  3. TRAZODONE HYDROCHLORIDE [Concomitant]
  4. MIRCETTE [Concomitant]

REACTIONS (7)
  - MUSCLE SPASMS [None]
  - CONFUSIONAL STATE [None]
  - ABASIA [None]
  - FALL [None]
  - CONVERSION DISORDER [None]
  - LOSS OF CONSCIOUSNESS [None]
  - ANXIETY [None]
